FAERS Safety Report 8610250-6 (Version None)
Quarter: 2012Q3

REPORT INFORMATION
  Report Type: 
  Country: None (occurrence: None)
  Receive Date: 20120810
  Receipt Date: 20120810
  Transmission Date: 20120928
  Serious: Yes (Hospitalization)
  Sender: FDA-Public Use
  Company Number: None

PATIENT
  Sex: Female
  Weight: 116 kg

DRUGS (1)
  1. TEMOZOLOMIDE [Suspect]
     Dosage: 3360 MG
     Dates: start: 20101128

REACTIONS (1)
  - DYSPNOEA [None]
